FAERS Safety Report 17074552 (Version 1)
Quarter: 2019Q4

REPORT INFORMATION
  Report Type: Spontaneous
  Country: RU (occurrence: RU)
  Receive Date: 20191126
  Receipt Date: 20191126
  Transmission Date: 20200122
  Serious: Yes (Other)
  Sender: FDA-Public Use
  Company Number: RU-ROCHE-2475828

PATIENT
  Sex: Female

DRUGS (6)
  1. ATEZOLIZUMAB. [Concomitant]
     Active Substance: ATEZOLIZUMAB
     Dosage: ON DAY 1 AND DAY 15.
     Route: 041
  2. CARBOPLATIN. [Concomitant]
     Active Substance: CARBOPLATIN
     Dosage: AUC2 12 WEEKS.
     Route: 065
     Dates: start: 201810, end: 201901
  3. NAB-PACLITAXEL [Concomitant]
     Active Substance: PACLITAXEL
     Dosage: DAY 1, 8 AND 15.
     Route: 065
  4. ERIBULIN [Concomitant]
     Active Substance: ERIBULIN
     Dosage: DAY 8 AND DAY 21.
     Route: 065
     Dates: start: 201902, end: 201906
  5. HERCEPTIN [Suspect]
     Active Substance: TRASTUZUMAB
     Indication: BREAST CANCER
     Route: 065
     Dates: start: 201708, end: 20171111
  6. PACLITAXEL. [Concomitant]
     Active Substance: PACLITAXEL
     Route: 065
     Dates: start: 201810, end: 201901

REACTIONS (1)
  - Disease progression [Recovered/Resolved]

NARRATIVE: CASE EVENT DATE: 201906
